FAERS Safety Report 21944676 (Version 6)
Quarter: 2023Q2

REPORT INFORMATION
  Report Type: Spontaneous
  Country: US (occurrence: US)
  Receive Date: 20230202
  Receipt Date: 20230630
  Transmission Date: 20230722
  Serious: Yes (Hospitalization, Other)
  Sender: FDA-Public Use
  Company Number: US-PFIZER INC-PV202300020116

PATIENT
  Age: 59 Year
  Sex: Female

DRUGS (1)
  1. NYVEPRIA [Suspect]
     Active Substance: PEGFILGRASTIM-APGF
     Indication: Ovarian cancer metastatic
     Dosage: 6 MG/0.6 ML

REACTIONS (13)
  - Weight decreased [Unknown]
  - Dehydration [Unknown]
  - Feeding disorder [Recovering/Resolving]
  - Transfusion [Unknown]
  - Mental impairment [Unknown]
  - Gastrointestinal disorder [Recovering/Resolving]
  - Decreased appetite [Recovering/Resolving]
  - Gait inability [Recovering/Resolving]
  - Asthenia [Recovering/Resolving]
  - Wound dehiscence [Recovering/Resolving]
  - Frustration tolerance decreased [Unknown]
  - Crying [Unknown]
  - Dental restoration failure [Unknown]

NARRATIVE: CASE EVENT DATE: 20230101
